FAERS Safety Report 10290966 (Version 1)
Quarter: 2014Q3

REPORT INFORMATION
  Report Type: Spontaneous
  Country: RU (occurrence: RU)
  Receive Date: 20140710
  Receipt Date: 20140710
  Transmission Date: 20150326
  Serious: Yes (Other)
  Sender: FDA-Public Use
  Company Number: RU-GLAXOSMITHKLINE-B1011973A

PATIENT
  Age: 30 Year
  Sex: Female
  Weight: 70.9 kg

DRUGS (4)
  1. BENLYSTA [Suspect]
     Active Substance: BELIMUMAB
     Indication: SYSTEMIC LUPUS ERYTHEMATOSUS
     Dosage: 710MG PER DAY
     Route: 042
     Dates: start: 20140619
  2. PLAQUENIL [Concomitant]
     Active Substance: HYDROXYCHLOROQUINE SULFATE
     Indication: SYSTEMIC LUPUS ERYTHEMATOSUS
     Dosage: 200MG PER DAY
     Route: 048
     Dates: start: 2013
  3. METYPRED [Concomitant]
     Active Substance: METHYLPREDNISOLONE
     Indication: SYSTEMIC LUPUS ERYTHEMATOSUS
     Dosage: 24MG PER DAY
     Route: 048
     Dates: start: 2003
  4. ZOLEDRONIC ACID [Concomitant]
     Active Substance: ZOLEDRONIC ACID
     Indication: OSTEOPOROSIS
     Dosage: 5MG SEE DOSAGE TEXT
     Route: 042
     Dates: start: 201403

REACTIONS (5)
  - Dizziness [Recovered/Resolved]
  - Blood pressure decreased [Unknown]
  - Haemoglobin increased [Unknown]
  - Headache [Recovered/Resolved]
  - Red blood cell count increased [Unknown]

NARRATIVE: CASE EVENT DATE: 20140704
